FAERS Safety Report 21542901 (Version 3)
Quarter: 2023Q2

REPORT INFORMATION
  Report Type: Report from Study
  Country: DE (occurrence: DE)
  Receive Date: 20221102
  Receipt Date: 20230629
  Transmission Date: 20230721
  Serious: Yes (Death, Other)
  Sender: FDA-Public Use
  Company Number: DE-AMGEN-DEUNI2022186435

PATIENT
  Age: 61 Year
  Sex: Male

DRUGS (3)
  1. SOTORASIB [Suspect]
     Active Substance: SOTORASIB
     Indication: Non-small cell lung cancer stage IV
     Dosage: 960 MILLIGRAM, QD
     Route: 065
     Dates: start: 20210930, end: 20211217
  2. SOTORASIB [Suspect]
     Active Substance: SOTORASIB
     Indication: K-ras gene mutation
     Dosage: 480 MILLIGRAM, QD
     Route: 065
     Dates: start: 20220101, end: 20220115
  3. SOTORASIB [Suspect]
     Active Substance: SOTORASIB
     Dosage: 240 MILLIGRAM, QD
     Route: 065
     Dates: start: 20220125, end: 20220331

REACTIONS (7)
  - Death [Fatal]
  - Metastases to central nervous system [Unknown]
  - Non-small cell lung cancer [Unknown]
  - Metastases to central nervous system [Unknown]
  - Transaminases increased [Unknown]
  - Transaminases increased [Unknown]
  - Diarrhoea [Unknown]

NARRATIVE: CASE EVENT DATE: 20211217
